FAERS Safety Report 16628758 (Version 2)
Quarter: 2019Q3

REPORT INFORMATION
  Report Type: Spontaneous
  Country: US (occurrence: US)
  Receive Date: 20190725
  Receipt Date: 20190729
  Transmission Date: 20191004
  Serious: No
  Sender: FDA-Public Use
  Company Number: US-PFIZER INC-2019315379

PATIENT
  Sex: Female

DRUGS (1)
  1. XELJANZ [Suspect]
     Active Substance: TOFACITINIB CITRATE
     Indication: RHEUMATOID ARTHRITIS
     Dosage: 5 MG, UNK (MOST DAYS TWICE A DAY SOMETIMES ONCE A DAY)

REACTIONS (5)
  - Off label use [Unknown]
  - Product use issue [Unknown]
  - Nasopharyngitis [Unknown]
  - Pyrexia [Unknown]
  - Viral infection [Unknown]
